FAERS Safety Report 8862234 (Version 1)
Quarter: 2012Q4

REPORT INFORMATION
  Report Type: 
  Country: US (occurrence: US)
  Receive Date: 20121026
  Receipt Date: 20121026
  Transmission Date: 20130627
  Serious: Yes (Other)
  Sender: FDA-Public Use
  Company Number: US-FRI-1000039728

PATIENT
  Age: 59 Year
  Sex: Male

DRUGS (4)
  1. BYSTOLIC [Suspect]
     Indication: HYPERTENSION
     Dosage: 10MG
     Route: 048
     Dates: start: 201209
  2. TRAVATAN [Concomitant]
     Indication: GLAUCOMA
     Dosage: DAILY
  3. COSOPT [Concomitant]
     Indication: GLAUCOMA
     Dosage: DAILY
  4. TRIBENZOR [Concomitant]
     Indication: HYPERTENSION
     Dosage: DAILY

REACTIONS (4)
  - Tunnel vision [Recovered/Resolved]
  - Vertigo [Recovered/Resolved]
  - Hot flush [Recovered/Resolved]
  - Hyperhidrosis [Recovered/Resolved]
